FAERS Safety Report 6832074-2 (Version None)
Quarter: 2010Q3

REPORT INFORMATION
  Report Type: 
  Country: None (occurrence: None)
  Receive Date: 20100712
  Receipt Date: 20100707
  Transmission Date: 20110219
  Serious: Yes (Hospitalization)
  Sender: FDA-Public Use
  Company Number: PL-BRISTOL-MYERS SQUIBB COMPANY-15171242

PATIENT
  Age: 57 Year
  Sex: Female

DRUGS (10)
  1. ABATACEPT [Suspect]
     Indication: RHEUMATOID ARTHRITIS
     Dosage: INTERRUPTED ON 13AUG09 1DF: 750 UNIT NOS
     Route: 058
     Dates: start: 20090226
  2. METHOTREXATE [Suspect]
     Indication: RHEUMATOID ARTHRITIS
     Dates: start: 20081106, end: 20100615
  3. METYPRED [Concomitant]
     Dates: start: 20030630
  4. DICLAC [Concomitant]
     Dates: start: 20080717, end: 20100615
  5. METOPROLOL [Concomitant]
     Dates: start: 20080717
  6. TIALORID [Concomitant]
     Dates: start: 20080717
  7. ZOCOR [Concomitant]
     Dates: start: 20080717
  8. CALCIUM [Concomitant]
     Dates: start: 20080717, end: 20100615
  9. ALPHACALCIDOL [Concomitant]
     Dates: start: 20080717, end: 20100615
  10. TRAMADOL [Concomitant]

REACTIONS (1)
  - VOMITING [None]
